FAERS Safety Report 7917818-0 (Version None)
Quarter: 2011Q4

REPORT INFORMATION
  Report Type: 
  Country: None (occurrence: None)
  Receive Date: 20111116
  Receipt Date: 20111102
  Transmission Date: 20120403
  Serious: Yes (Other)
  Sender: FDA-Public Use
  Company Number: PHHY2011DE27559

PATIENT
  Sex: Female
  Weight: 78 kg

DRUGS (2)
  1. ESCITALOPRAM [Concomitant]
     Dosage: 10 MG, UNK
     Route: 048
     Dates: start: 20100101
  2. CLOZAPINE [Suspect]
     Indication: SCHIZOAFFECTIVE DISORDER
     Dosage: 400 MG, UNK
     Route: 048
     Dates: start: 20100101

REACTIONS (2)
  - SALIVARY GLAND ENLARGEMENT [None]
  - SIALOADENITIS [None]
